FAERS Safety Report 5002443-4 (Version None)
Quarter: 2006Q2

REPORT INFORMATION
  Report Type: 
  Country: None (occurrence: None)
  Receive Date: 20060515
  Receipt Date: 20050412
  Transmission Date: 20061013
  Serious: Yes (Hospitalization)
  Sender: FDA-Public Use
  Company Number: US-MERCK-0504USA02032

PATIENT
  Age: 55 Year
  Sex: Male
  Weight: 86 kg

DRUGS (6)
  1. VIOXX [Suspect]
     Indication: PAIN MANAGEMENT
     Route: 048
     Dates: start: 19990101, end: 20040930
  2. VIOXX [Suspect]
     Route: 048
     Dates: start: 19990101, end: 20040930
  3. VIOXX [Suspect]
     Route: 048
     Dates: start: 19990101, end: 20040930
  4. VIOXX [Suspect]
     Indication: ARTHRITIS
     Route: 048
     Dates: start: 19990101, end: 20040930
  5. VIOXX [Suspect]
     Route: 048
     Dates: start: 19990101, end: 20040930
  6. VIOXX [Suspect]
     Route: 048
     Dates: start: 19990101, end: 20040930

REACTIONS (5)
  - ANXIETY [None]
  - BACK PAIN [None]
  - ISCHAEMIC STROKE [None]
  - PAIN [None]
  - ROTATOR CUFF SYNDROME [None]
